FAERS Safety Report 16928805 (Version 8)
Quarter: 2020Q4

REPORT INFORMATION
  Report Type: Report from Study
  Country: FR (occurrence: FR)
  Receive Date: 20191017
  Receipt Date: 20201006
  Transmission Date: 20210113
  Serious: Yes (Hospitalization)
  Sender: FDA-Public Use
  Company Number: FR-ROCHE-2427076

PATIENT
  Age: 42 Year
  Sex: Female
  Weight: 70.7 kg

DRUGS (6)
  1. CYCLOPHOSPHAMIDE. [Suspect]
     Active Substance: CYCLOPHOSPHAMIDE
     Indication: HER2 POSITIVE BREAST CANCER
     Route: 065
     Dates: start: 20141107
  2. EPIRUBICIN [Suspect]
     Active Substance: EPIRUBICIN
     Indication: HER2 POSITIVE BREAST CANCER
     Route: 065
     Dates: start: 20141107
  3. PERTUZUMAB. [Suspect]
     Active Substance: PERTUZUMAB
     Indication: HER2 POSITIVE BREAST CANCER
     Dosage: LOADING DOSE
     Route: 042
     Dates: start: 20150130
  4. PERTUZUMAB. [Suspect]
     Active Substance: PERTUZUMAB
     Dosage: MAINTENANCE DOSE
     Route: 042
  5. TAMOXIFENE [Suspect]
     Active Substance: TAMOXIFEN
     Indication: HORMONE THERAPY
     Route: 065
     Dates: start: 20150521, end: 20190406
  6. TRASTUZUMAB EMTANSINE [Suspect]
     Active Substance: ADO-TRASTUZUMAB EMTANSINE
     Indication: HER2 POSITIVE BREAST CANCER
     Dosage: DURATION 90 MINUTES FOR UP TO 18 CYCLES (1 CYCLE = 21 DAYS).
     Route: 042
     Dates: start: 20150130

REACTIONS (1)
  - Varices oesophageal [Not Recovered/Not Resolved]

NARRATIVE: CASE EVENT DATE: 20190304
